FAERS Safety Report 6292526-3 (Version None)
Quarter: 2009Q3

REPORT INFORMATION
  Report Type: 
  Country: None (occurrence: None)
  Receive Date: 20090731
  Receipt Date: 20090727
  Transmission Date: 20100115
  Serious: Yes (Hospitalization)
  Sender: FDA-Public Use
  Company Number: JP-BAYER-200912311BYL

PATIENT
  Age: 66 Year
  Sex: Female

DRUGS (3)
  1. NEXAVAR [Suspect]
     Indication: HEPATIC NEOPLASM MALIGNANT NON-RESECTABLE
     Dosage: TOTAL DAILY DOSE: 800 MG  UNIT DOSE: 200 MG
     Route: 048
     Dates: start: 20090701, end: 20090707
  2. UREPEARL [Concomitant]
     Indication: PRURITUS GENERALISED
     Route: 061
     Dates: start: 20090703
  3. CELESTAMINE TAB [Concomitant]
     Indication: PRURITUS GENERALISED
     Route: 048
     Dates: start: 20090704

REACTIONS (4)
  - ABDOMINAL PAIN UPPER [None]
  - DIARRHOEA [None]
  - DIZZINESS [None]
  - HEPATIC FUNCTION ABNORMAL [None]
